FAERS Safety Report 18433567 (Version 1)
Quarter: 2020Q4

REPORT INFORMATION
  Report Type: Spontaneous
  Country: US (occurrence: US)
  Receive Date: 20201027
  Receipt Date: 20201027
  Transmission Date: 20210114
  Serious: No
  Sender: FDA-Public Use
  Company Number: US-BAUSCH-BL-2020-029387

PATIENT
  Age: 72 Year
  Sex: Female
  Weight: 59.02 kg

DRUGS (1)
  1. PROPARACAINE [Suspect]
     Active Substance: PROPARACAINE
     Indication: GLAUCOMA
     Route: 065

REACTIONS (1)
  - Drug hypersensitivity [Unknown]
